FAERS Safety Report 24240537 (Version 6)
Quarter: 2025Q1

REPORT INFORMATION
  Report Type: Spontaneous
  Country: US (occurrence: US)
  Receive Date: 20240822
  Receipt Date: 20250102
  Transmission Date: 20250409
  Serious: Yes (Hospitalization, Other)
  Sender: BLUEPRINT MEDICINES
  Company Number: US-Blueprint Medicines Corporation-4505

PATIENT
  Age: 47 Year
  Sex: Female

DRUGS (6)
  1. AYVAKIT [Suspect]
     Active Substance: AVAPRITINIB
     Indication: Systemic mastocytosis
     Route: 048
     Dates: start: 20241015
  2. AYVAKIT [Suspect]
     Active Substance: AVAPRITINIB
     Indication: Mastocytoma
  3. POTASSIUM CHLORIDE [Concomitant]
     Active Substance: POTASSIUM CHLORIDE
     Indication: Product used for unknown indication
  4. REGLAN [Concomitant]
     Active Substance: METOCLOPRAMIDE HYDROCHLORIDE
     Indication: Product used for unknown indication
  5. PROMETHAZINE [Concomitant]
     Active Substance: PROMETHAZINE HYDROCHLORIDE
     Indication: Product used for unknown indication
  6. XOLAIR [Concomitant]
     Active Substance: OMALIZUMAB
     Indication: Product used for unknown indication

REACTIONS (20)
  - Condition aggravated [Unknown]
  - Systemic mastocytosis [Unknown]
  - Pancreatitis [Unknown]
  - Loss of consciousness [Unknown]
  - Vomiting [Unknown]
  - Diarrhoea [Unknown]
  - Bile acid malabsorption [Not Recovered/Not Resolved]
  - Adverse drug reaction [Unknown]
  - Eating disorder [Not Recovered/Not Resolved]
  - Urticaria [Not Recovered/Not Resolved]
  - Dizziness postural [Unknown]
  - Aphasia [Unknown]
  - Rash [Not Recovered/Not Resolved]
  - Speech disorder [Recovering/Resolving]
  - Nausea [Unknown]
  - Memory impairment [Recovering/Resolving]
  - Dehydration [Unknown]
  - Rash macular [Unknown]
  - Fatigue [Unknown]
  - Product dose omission issue [Unknown]
